FAERS Safety Report 5854485-4 (Version None)
Quarter: 2008Q3

REPORT INFORMATION
  Report Type: 
  Country: None (occurrence: None)
  Receive Date: 20080822
  Receipt Date: 20070731
  Transmission Date: 20090109
  Serious: No
  Sender: FDA-Public Use
  Company Number: US-ABBOTT-07P-163-0376567-00

PATIENT
  Sex: Female
  Weight: 69.008 kg

DRUGS (1)
  1. SYNTHROID [Suspect]
     Indication: HYPOTHYROIDISM
     Dosage: LOT # /EXP NOT ON PHARMACY BOTTLE PER CONSUMER
     Route: 048
     Dates: start: 20030101

REACTIONS (1)
  - HYPERAESTHESIA [None]
